FAERS Safety Report 26108742 (Version 3)
Quarter: 2025Q4

REPORT INFORMATION
  Report Type: Spontaneous
  Country: US (occurrence: US)
  Receive Date: 20251201
  Receipt Date: 20251223
  Transmission Date: 20260117
  Serious: Yes (Other)
  Sender: NIVAGEN PHARMACEUTICALS INC
  Company Number: US-NPI-000150

PATIENT
  Sex: Female

DRUGS (1)
  1. CALCIUM GLUCONATE [Suspect]
     Active Substance: CALCIUM GLUCONATE
     Indication: Hypocalcaemia
     Dosage: CALCIUM GLUCONATE INJECTION USP 5000MG PER 50 ML (100 ?MG PER ML)
     Route: 065

REACTIONS (4)
  - Treatment delayed [Unknown]
  - Product deposit [Unknown]
  - Product solubility abnormal [Unknown]
  - Intercepted medication error [Unknown]
